FAERS Safety Report 5747174-8 (Version None)
Quarter: 2008Q2

REPORT INFORMATION
  Report Type: 
  Country: None (occurrence: None)
  Receive Date: 20080520
  Receipt Date: 20080502
  Transmission Date: 20081010
  Serious: Yes (Hospitalization)
  Sender: FDA-Public Use
  Company Number: 8031977

PATIENT
  Age: 72 Year
  Sex: Female

DRUGS (13)
  1. XYZAL [Suspect]
     Indication: DERMATITIS CONTACT
     Dosage: 1 DF D PO
     Route: 048
     Dates: start: 20080415, end: 20080415
  2. PREDNISONE TAB [Concomitant]
  3. DIOVAN [Concomitant]
  4. COREG [Concomitant]
  5. PREMARIN [Concomitant]
  6. VITAMIN K TAB [Concomitant]
  7. LEXAPRO [Concomitant]
  8. CLARITIN [Concomitant]
  9. MULTI-VITAMIN [Concomitant]
  10. CALCIUM [Concomitant]
  11. FLAX SEED OIL [Concomitant]
  12. FIBER-LAX [Concomitant]
  13. POTASSIUM CHLORIDE [Concomitant]

REACTIONS (2)
  - HYPOTENSION [None]
  - LOSS OF CONSCIOUSNESS [None]
